FAERS Safety Report 6378402-6 (Version None)
Quarter: 2009Q3

REPORT INFORMATION
  Report Type: 
  Country: None (occurrence: None)
  Receive Date: 20090925
  Receipt Date: 20090917
  Transmission Date: 20100115
  Serious: Yes (Death)
  Sender: FDA-Public Use
  Company Number: IL-AMGEN-US366130

PATIENT
  Age: 60 Year
  Sex: Female

DRUGS (2)
  1. ENBREL [Suspect]
     Indication: RHEUMATOID ARTHRITIS
     Route: 058
     Dates: start: 20070101, end: 20090101
  2. METHOTREXATE [Concomitant]
     Dosage: LOW DOSE
     Route: 065

REACTIONS (1)
  - BREAST CANCER METASTATIC [None]
